FAERS Safety Report 8791829 (Version 2)
Quarter: 2012Q4

REPORT INFORMATION
  Report Type: 
  Country: JP (occurrence: JP)
  Receive Date: 20120918
  Receipt Date: 20121022
  Transmission Date: 20130627
  Serious: Yes (Death)
  Sender: FDA-Public Use
  Company Number: JP-SANOFI-AVENTIS-2012SA061191

PATIENT
  Age: 76 Year
  Sex: Male
  Weight: 65.6 kg

DRUGS (6)
  1. PLAVIX [Suspect]
     Indication: CEREBROVASCULAR ACCIDENT PROPHYLAXIS
     Route: 048
     Dates: start: 20120504, end: 20120730
  2. BAYASPIRIN [Suspect]
     Indication: CEREBROVASCULAR ACCIDENT PROPHYLAXIS
     Route: 048
     Dates: start: 20120504, end: 20120730
  3. TAKEPRON [Concomitant]
     Indication: GASTRIC ULCER PROPHYLAXIS
     Route: 048
     Dates: start: 20120504, end: 20120730
  4. METFORMIN HYDROCHLORIDE [Concomitant]
     Indication: DIABETES MELLITUS
     Route: 048
     Dates: start: 20120504, end: 20120730
  5. MILMAG [Concomitant]
  6. LAXOBERON [Concomitant]

REACTIONS (2)
  - Altered state of consciousness [Fatal]
  - Melaena [Fatal]
